FAERS Safety Report 6411806-1 (Version None)
Quarter: 2009Q4

REPORT INFORMATION
  Report Type: 
  Country: None (occurrence: None)
  Receive Date: 20091023
  Receipt Date: 20091014
  Transmission Date: 20100525
  Serious: Yes (Hospitalization)
  Sender: FDA-Public Use
  Company Number: JP-BRISTOL-MYERS SQUIBB COMPANY-14642854

PATIENT
  Age: 35 Year
  Sex: Male

DRUGS (6)
  1. SPRYCEL [Suspect]
     Indication: BLAST CRISIS IN MYELOGENOUS LEUKAEMIA
     Dosage: INTERRUPTED ON 20MAY09 + RESTARTED ON 27MAY09 100 MG DAILY
     Route: 048
     Dates: start: 20090327
  2. AMBISOME [Suspect]
     Indication: ADVERSE EVENT
     Route: 042
     Dates: start: 20090528, end: 20090602
  3. IMATINIB MESILATE [Concomitant]
     Dates: start: 20060222, end: 20090326
  4. MUCOSTA [Concomitant]
     Route: 048
     Dates: start: 20090327
  5. ZYLORIC [Concomitant]
     Route: 048
     Dates: start: 20090327, end: 20090402
  6. POTASSIUM CHLORIDE [Concomitant]
     Dosage: TABS
     Route: 048
     Dates: start: 20090520, end: 20090608

REACTIONS (6)
  - ANAEMIA [None]
  - HYPOKALAEMIA [None]
  - MOUTH HAEMORRHAGE [None]
  - PANCYTOPENIA [None]
  - PNEUMONIA [None]
  - PYREXIA [None]
